FAERS Safety Report 6638788-1 (Version None)
Quarter: 2010Q1

REPORT INFORMATION
  Report Type: 
  Country: None (occurrence: None)
  Receive Date: 20100317
  Receipt Date: 20100305
  Transmission Date: 20100710
  Serious: Yes (Other)
  Sender: FDA-Public Use
  Company Number: BR-PFIZER INC-2010028592

PATIENT
  Age: 52 Year
  Sex: Female
  Weight: 65 kg

DRUGS (2)
  1. CHAMPIX [Suspect]
     Indication: SMOKING CESSATION THERAPY
     Dosage: 1 MG, 2X/DAY
     Route: 048
  2. CHAMPIX [Suspect]
     Indication: NICOTINE DEPENDENCE
     Dosage: 1 MG, 1X/DAY
     Route: 048

REACTIONS (3)
  - CHEST DISCOMFORT [None]
  - EXOPHTHALMOS [None]
  - LIP DISCOLOURATION [None]
